FAERS Safety Report 13031071 (Version 2)
Quarter: 2017Q2

REPORT INFORMATION
  Report Type: Spontaneous
  Country: US (occurrence: US)
  Receive Date: 20161215
  Receipt Date: 20170427
  Transmission Date: 20170830
  Serious: Yes (Hospitalization, Other)
  Sender: FDA-Public Use
  Company Number: US-ASTRAZENECA-2016SF30886

PATIENT
  Age: 54 Year
  Sex: Female
  Weight: 67.1 kg

DRUGS (16)
  1. ADVAIR HFA [Suspect]
     Active Substance: FLUTICASONE PROPIONATE\SALMETEROL XINAFOATE
     Indication: PNEUMONIA
     Dosage: 500/50 UG 1 PUFF(S) TWICE T LAILY (2 PUFF(S) DAILY)
     Route: 065
     Dates: start: 20030609, end: 20040731
  2. BABY ASPIRIN [Concomitant]
     Active Substance: ASPIRIN
  3. LEVOTHYROXINE. [Concomitant]
     Active Substance: LEVOTHYROXINE
  4. VITAMIN B12 [Concomitant]
     Active Substance: CYANOCOBALAMIN
  5. VITAMIN D [Concomitant]
     Active Substance: CHOLECALCIFEROL
  6. ADVAIR HFA [Suspect]
     Active Substance: FLUTICASONE PROPIONATE\SALMETEROL XINAFOATE
     Indication: ASTHMA
     Dosage: 500/50 UG 1 PUFF(S) TWICE T LAILY (2 PUFF(S) DAILY)
     Route: 065
     Dates: start: 20030609, end: 20040731
  7. CALCIUM WITH MAGNESIUM [Concomitant]
  8. CARDIZEM [Concomitant]
     Active Substance: DILTIAZEM HYDROCHLORIDE
  9. FLONASE [Suspect]
     Active Substance: FLUTICASONE PROPIONATE
     Indication: ASTHMA
     Dosage: ONE SPRAY IN EACH NOSTRIL EACH MORNING AND NIGHT FOR APPROXIMATELY 15 YEARS
     Route: 065
  10. ZOLOFT [Concomitant]
     Active Substance: SERTRALINE HYDROCHLORIDE
  11. ADVAIR HFA [Suspect]
     Active Substance: FLUTICASONE PROPIONATE\SALMETEROL XINAFOATE
     Indication: BRONCHITIS
     Dosage: 500/50 UG 1 PUFF(S) TWICE T LAILY (2 PUFF(S) DAILY)
     Route: 065
     Dates: start: 20030609, end: 20040731
  12. ADVAIR HFA [Suspect]
     Active Substance: FLUTICASONE PROPIONATE\SALMETEROL XINAFOATE
     Indication: CHRONIC OBSTRUCTIVE PULMONARY DISEASE
     Dosage: 500/50 UG 1 PUFF(S) TWICE T LAILY (2 PUFF(S) DAILY)
     Route: 065
     Dates: start: 20030609, end: 20040731
  13. CRESTOR [Suspect]
     Active Substance: ROSUVASTATIN CALCIUM
     Route: 048
  14. PREVACID [Concomitant]
     Active Substance: LANSOPRAZOLE
  15. ZYRTEC [Concomitant]
     Active Substance: CETIRIZINE HYDROCHLORIDE
  16. SINGULAIR [Concomitant]
     Active Substance: MONTELUKAST SODIUM

REACTIONS (6)
  - Pancreatic disorder [Unknown]
  - Hepatic enzyme increased [Recovered/Resolved]
  - Malaise [Unknown]
  - Drug ineffective [Unknown]
  - Herpes oesophagitis [Recovered/Resolved]
  - Abdominal pain upper [Unknown]

NARRATIVE: CASE EVENT DATE: 2010
